FAERS Safety Report 9374492 (Version 2)
Quarter: 2013Q3

REPORT INFORMATION
  Report Type: Spontaneous
  Country: BR (occurrence: BR)
  Receive Date: 20130628
  Receipt Date: 20130728
  Transmission Date: 20140515
  Serious: No
  Sender: FDA-Public Use
  Company Number: PHHY2013BR066579

PATIENT
  Age: 11 Year
  Sex: Female

DRUGS (1)
  1. RITALINA [Suspect]
     Indication: ATTENTION DEFICIT/HYPERACTIVITY DISORDER
     Dosage: 3 DF, DAILY
     Route: 048

REACTIONS (6)
  - Limb injury [Recovered/Resolved]
  - Learning disorder [Recovered/Resolved]
  - Enuresis [Recovered/Resolved]
  - Insomnia [Recovered/Resolved]
  - Restlessness [Recovered/Resolved]
  - Drug administered to patient of inappropriate age [Unknown]
